FAERS Safety Report 7789872-0 (Version None)
Quarter: 2011Q3

REPORT INFORMATION
  Report Type: 
  Country: None (occurrence: None)
  Receive Date: 20110930
  Receipt Date: 20110202
  Transmission Date: 20111222
  Serious: No
  Sender: FDA-Public Use
  Company Number: US-ASTRAZENECA-2011SE05740

PATIENT
  Age: 47 Year
  Sex: Female

DRUGS (5)
  1. VYVANSE [Concomitant]
     Indication: ATTENTION DEFICIT/HYPERACTIVITY DISORDER
  2. WELLBUTRIN XL [Concomitant]
  3. VITAMIN TAB [Concomitant]
  4. ARIMIDEX [Suspect]
     Indication: BREAST CANCER
     Route: 048
     Dates: start: 20080101
  5. CALCIUM CARBONATE [Interacting]
     Route: 065

REACTIONS (4)
  - ABNORMAL DREAMS [None]
  - DRUG INTERACTION [None]
  - PAIN [None]
  - HOT FLUSH [None]
